FAERS Safety Report 4451210-9 (Version None)
Quarter: 2004Q3

REPORT INFORMATION
  Report Type: 
  Country: None (occurrence: None)
  Receive Date: 20040915
  Receipt Date: 20040915
  Transmission Date: 20050211
  Serious: Yes (Death)
  Sender: FDA-Public Use
  Company Number: None

PATIENT
  Sex: Female

DRUGS (9)
  1. ADRIAMYCIN PFS [Suspect]
     Indication: BREAST CANCER
     Dosage: SEE IMAGE
     Dates: start: 20000518
  2. ADRIAMYCIN PFS [Suspect]
     Indication: BREAST CANCER
     Dosage: SEE IMAGE
     Dates: start: 20000609
  3. ADRIAMYCIN PFS [Suspect]
     Indication: BREAST CANCER
     Dosage: SEE IMAGE
     Dates: start: 20000628
  4. ADRIAMYCIN PFS [Suspect]
     Indication: BREAST CANCER
     Dosage: SEE IMAGE
     Dates: start: 20000727
  5. CYCLOPHOSPHAMIDE [Concomitant]
  6. ANTIEMETICS (LORAZEPAM, DOLASETRON, COMPAZINE, DECADRON) [Concomitant]
  7. VIT E [Concomitant]
  8. B6 [Concomitant]
  9. M.V.I. [Concomitant]

REACTIONS (9)
  - CARDIAC DISORDER [None]
  - DRUG TOXICITY [None]
  - DYSPNOEA [None]
  - EJECTION FRACTION DECREASED [None]
  - HYPOTENSION [None]
  - PERICARDIAL EFFUSION [None]
  - POST PROCEDURAL COMPLICATION [None]
  - PROCEDURAL COMPLICATION [None]
  - REFUSAL OF TREATMENT BY PATIENT [None]
